FAERS Safety Report 20993796 (Version 1)
Quarter: 2022Q2

REPORT INFORMATION
  Report Type: Spontaneous
  Country: None (occurrence: A1)
  Receive Date: 20220622
  Receipt Date: 20220622
  Transmission Date: 20220721
  Serious: Yes (Hospitalization)
  Sender: FDA-Public Use
  Company Number: A1-Avion Pharmaceuticals, LLC-2130167

PATIENT
  Age: 66 Year
  Sex: Male

DRUGS (5)
  1. DHIVY [Suspect]
     Active Substance: CARBIDOPA\LEVODOPA
     Indication: Parkinson^s disease
     Route: 065
  2. TRIHEXYPHENIDYL [Suspect]
     Active Substance: TRIHEXYPHENIDYL
     Route: 065
  3. ENTACAPONE [Suspect]
     Active Substance: ENTACAPONE
     Route: 065
  4. NALOXONE HCL [Concomitant]
     Active Substance: NALOXONE HYDROCHLORIDE
     Route: 065
  5. BENSERAZIDE [Suspect]
     Active Substance: BENSERAZIDE
     Route: 065

REACTIONS (11)
  - Hallucination [Unknown]
  - Confusional state [Unknown]
  - Behaviour disorder [Unknown]
  - Insomnia [Unknown]
  - Delirium [Unknown]
  - Irritability [Unknown]
  - Somnolence [Unknown]
  - Psychotic disorder [Unknown]
  - Tremor [Unknown]
  - Bradykinesia [Unknown]
  - Fear [Unknown]
